FAERS Safety Report 6595960-7 (Version None)
Quarter: 2010Q1

REPORT INFORMATION
  Report Type: 
  Country: None (occurrence: None)
  Receive Date: 20100223
  Receipt Date: 20100210
  Transmission Date: 20100710
  Serious: Yes (Other)
  Sender: FDA-Public Use
  Company Number: PHHY2009JP45967

PATIENT
  Sex: Female
  Weight: 55 kg

DRUGS (7)
  1. CO-DIOVAN [Suspect]
     Indication: HYPERTENSION
     Dosage: 1 DF (80/12.5 MG) DAILY
     Route: 048
     Dates: start: 20090722, end: 20091005
  2. TEGRETOL [Suspect]
     Dosage: UNK
     Route: 065
  3. DIART [Suspect]
     Indication: SWELLING
     Dosage: 60 MG, UNK
     Route: 048
     Dates: start: 20060602, end: 20091005
  4. ALDACTONE [Concomitant]
     Indication: SWELLING
     Dosage: 25 MG,
     Route: 048
     Dates: start: 20031020, end: 20091105
  5. ALLOPURINOL [Concomitant]
     Indication: HYPERURICAEMIA
     Dosage: 15 MG
     Route: 048
     Dates: start: 20070423, end: 20091105
  6. TAKEPRON [Concomitant]
     Indication: REFLUX OESOPHAGITIS
     Dosage: 15 MG
     Route: 048
     Dates: start: 20081202
  7. URSO 250 [Concomitant]
     Indication: HEPATIC CIRRHOSIS
     Dosage: 150 MG
     Route: 048
     Dates: start: 20031209

REACTIONS (12)
  - ABDOMINAL DISCOMFORT [None]
  - BLOOD CREATININE INCREASED [None]
  - BLOOD PRESSURE INCREASED [None]
  - DEHYDRATION [None]
  - DIARRHOEA [None]
  - GASTROENTERITIS [None]
  - HAEMOGLOBIN DECREASED [None]
  - HYPERKALAEMIA [None]
  - HYPONATRAEMIA [None]
  - MALAISE [None]
  - PYREXIA [None]
  - VOMITING [None]
